FAERS Safety Report 5446791-2 (Version None)
Quarter: 2007Q3

REPORT INFORMATION
  Report Type: 
  Country: None (occurrence: None)
  Receive Date: 20070907
  Receipt Date: 20070829
  Transmission Date: 20080115
  Serious: Yes (Other)
  Sender: FDA-Public Use
  Company Number: US-PFIZER INC-2007072493

PATIENT
  Sex: Female

DRUGS (5)
  1. DILANTIN [Suspect]
  2. NAPROSYN [Concomitant]
  3. CALCIUM [Concomitant]
  4. IRON [Concomitant]
  5. ACTIVELLA [Concomitant]

REACTIONS (2)
  - APLASTIC ANAEMIA [None]
  - PANCYTOPENIA [None]
